FAERS Safety Report 22098126 (Version 1)
Quarter: 2023Q1

REPORT INFORMATION
  Report Type: Spontaneous
  Country: US (occurrence: US)
  Receive Date: 20230315
  Receipt Date: 20230315
  Transmission Date: 20230418
  Serious: Yes (Other)
  Sender: FDA-Public Use
  Company Number: US-PURDUE PHARMA-USA-2023-0300261

PATIENT
  Sex: Male

DRUGS (1)
  1. OXYCODONE HYDROCHLORIDE [Suspect]
     Active Substance: OXYCODONE HYDROCHLORIDE
     Indication: Product used for unknown indication
     Dosage: 15 MILLIGRAM
     Route: 048

REACTIONS (5)
  - Hallucination [Unknown]
  - Pyrexia [Unknown]
  - Blood pressure decreased [Unknown]
  - Palpitations [Unknown]
  - Wrong technique in product usage process [Unknown]
